FAERS Safety Report 8515710-4 (Version None)
Quarter: 2012Q3

REPORT INFORMATION
  Report Type: 
  Country: None (occurrence: None)
  Receive Date: 20120717
  Receipt Date: 20120712
  Transmission Date: 20120928
  Serious: Yes (Other)
  Sender: FDA-Public Use
  Company Number: PHEH2011US05332

PATIENT
  Age: 56 Year
  Sex: Female

DRUGS (1)
  1. GILENYA [Suspect]
     Indication: RELAPSING-REMITTING MULTIPLE SCLEROSIS
     Dosage: UNK UKN, UNK
     Dates: start: 20110816, end: 20110817

REACTIONS (5)
  - NYSTAGMUS [None]
  - VISUAL ACUITY REDUCED [None]
  - HYPOAESTHESIA [None]
  - DYSAESTHESIA [None]
  - CENTRAL NERVOUS SYSTEM LESION [None]
